FAERS Safety Report 7047355-X (Version None)
Quarter: 2010Q4

REPORT INFORMATION
  Report Type: 
  Country: None (occurrence: None)
  Receive Date: 20101015
  Receipt Date: 20101009
  Transmission Date: 20110411
  Serious: Yes (Death, Other)
  Sender: FDA-Public Use
  Company Number: PHHY2010MX67610

PATIENT
  Sex: Female

DRUGS (1)
  1. EXFORGE [Suspect]
     Indication: HYPERTENSION
     Dosage: 1 DF, QD
     Route: 048
     Dates: start: 20090101, end: 20100601

REACTIONS (5)
  - BED REST [None]
  - HAEMODIALYSIS [None]
  - MALAISE [None]
  - NASOPHARYNGITIS [None]
  - SPEECH DISORDER [None]
